FAERS Safety Report 5633500-7 (Version None)
Quarter: 2008Q1

REPORT INFORMATION
  Report Type: 
  Country: None (occurrence: None)
  Receive Date: 20080219
  Receipt Date: 20080204
  Transmission Date: 20080703
  Serious: Yes (Other)
  Sender: FDA-Public Use
  Company Number: SPV1-2008-00235

PATIENT
  Age: 6 Year
  Sex: Female
  Weight: 21.8 kg

DRUGS (2)
  1. VYVANSE [Suspect]
     Indication: ATTENTION DEFICIT/HYPERACTIVITY DISORDER
     Dosage: 30 MG, 1X/DAY: QD, ORAL
     Route: 048
     Dates: start: 20080202, end: 20080202
  2. VYVANSE [Suspect]
     Indication: OPPOSITIONAL DEFIANT DISORDER
     Dosage: 30 MG, 1X/DAY: QD, ORAL
     Route: 048
     Dates: start: 20080202, end: 20080202

REACTIONS (12)
  - AGITATION [None]
  - ANOREXIA [None]
  - DYSKINESIA [None]
  - FEELING JITTERY [None]
  - HALLUCINATION, VISUAL [None]
  - INSOMNIA [None]
  - NAUSEA [None]
  - PALPITATIONS [None]
  - PARANOIA [None]
  - STOMACH DISCOMFORT [None]
  - TACHYCARDIA [None]
  - TREMOR [None]
